FAERS Safety Report 8894259 (Version 1)
Quarter: 2012Q4

REPORT INFORMATION
  Report Type: 
  Country: US (occurrence: US)
  Receive Date: 20121107
  Receipt Date: 20121107
  Transmission Date: 20130627
  Serious: No
  Sender: FDA-Public Use
  Company Number: US-AMGEN-USASP2011059768

PATIENT
  Sex: Male

DRUGS (4)
  1. ENBREL [Suspect]
     Indication: PRODUCT USED FOR UNKNOWN INDICATION
  2. ASACOL HD [Concomitant]
     Dosage: 800 mg, UNK
  3. SYNTHROID [Concomitant]
     Dosage: 125 mug, UNK
  4. MULTIVITAMIN                       /00097801/ [Concomitant]

REACTIONS (1)
  - Rash [Unknown]
